FAERS Safety Report 5664864-6 (Version None)
Quarter: 2008Q1

REPORT INFORMATION
  Report Type: 
  Country: None (occurrence: None)
  Receive Date: 20080314
  Receipt Date: 20080303
  Transmission Date: 20080703
  Serious: Yes (Other)
  Sender: FDA-Public Use
  Company Number: US-PFIZER INC-2007074575

PATIENT
  Sex: Male

DRUGS (7)
  1. GABAPENTIN [Suspect]
  2. LYRICA [Suspect]
     Dates: start: 20070903
  3. ALL OTHER THERAPEUTIC PRODUCTS [Suspect]
  4. METHADONE [Concomitant]
  5. PERCOCET [Concomitant]
  6. EFFEXOR [Concomitant]
  7. BACLOFEN [Concomitant]

REACTIONS (8)
  - ADVERSE DRUG REACTION [None]
  - ASTHENIA [None]
  - BURNING SENSATION [None]
  - CONDITION AGGRAVATED [None]
  - FORMICATION [None]
  - ILL-DEFINED DISORDER [None]
  - PRURITUS [None]
  - TREMOR [None]
